FAERS Safety Report 8707820 (Version 2)
Quarter: 2013Q4

REPORT INFORMATION
  Report Type: Spontaneous
  Country: GB (occurrence: GB)
  Receive Date: 20120806
  Receipt Date: 20131108
  Transmission Date: 20140711
  Serious: Yes (Other)
  Sender: FDA-Public Use
  Company Number: GB-009507513-1207GBR013104

PATIENT
  Age: 69 Year
  Sex: Male
  Weight: 85 kg

DRUGS (15)
  1. ZOCOR [Suspect]
     Dosage: UNK
     Route: 048
     Dates: start: 20120622
  2. AMOXICILLIN [Concomitant]
     Dosage: UNK
     Dates: start: 20120501, end: 20120508
  3. AMOXICILLIN [Concomitant]
     Dosage: UNK
     Dates: start: 20120622, end: 20120629
  4. BUDESONIDE [Concomitant]
     Dosage: UNK
     Dates: start: 20120511, end: 20120512
  5. BUDESONIDE [Concomitant]
     Dosage: UNK
     Dates: start: 20120711, end: 20120712
  6. CALCIUM CARBONATE [Concomitant]
     Dosage: UNK
     Dates: start: 20120312, end: 20120511
  7. DEXAMETHASONE [Concomitant]
     Dosage: UNK
     Dates: start: 20120622, end: 20120623
  8. FINASTERIDE [Concomitant]
     Dosage: UNK
     Dates: start: 20120511, end: 20120608
  9. FLUTICASONE PROPIONATE [Concomitant]
     Dosage: UNK
     Dates: start: 20120511, end: 20120512
  10. FLUTICASONE PROPIONATE [Concomitant]
     Dosage: UNK
     Dates: start: 20120711, end: 20120712
  11. LANSOPRAZOLE [Concomitant]
     Dosage: UNK
     Dates: start: 20120510
  12. TERAZOSIN HYDROCHLORIDE [Concomitant]
     Dosage: UNK
     Dates: start: 20120607, end: 20120705
  13. VENTOLIN (ALBUTEROL) [Concomitant]
     Dosage: UNK
     Dates: start: 20120511
  14. VISCOTEARS [Concomitant]
     Dosage: UNK
     Dates: start: 20120709, end: 20120716
  15. VISCOTEARS [Concomitant]
     Dosage: UNK
     Dates: start: 20120510, end: 20120517

REACTIONS (2)
  - Chest discomfort [Recovered/Resolved]
  - Dyspnoea [Recovered/Resolved]
